FAERS Safety Report 7238227-6 (Version None)
Quarter: 2011Q1

REPORT INFORMATION
  Report Type: 
  Country: None (occurrence: None)
  Receive Date: 20110121
  Receipt Date: 20110119
  Transmission Date: 20110831
  Serious: No
  Sender: FDA-Public Use
  Company Number: US-PFIZER INC-2010115915

PATIENT
  Sex: Male
  Weight: 69.4 kg

DRUGS (6)
  1. TOPROL-XL [Concomitant]
     Dosage: UNK
  2. FENOFIBRIC ACID [Concomitant]
     Dosage: UNK
  3. LIPITOR [Concomitant]
     Dosage: UNK
  4. OXYCODONE [Concomitant]
     Dosage: UNK
  5. SUTENT [Suspect]
     Indication: METASTATIC RENAL CELL CARCINOMA
     Dosage: 50 MG, 1X/DAY
     Dates: start: 20100826
  6. METHADONE [Concomitant]
     Dosage: UNK

REACTIONS (10)
  - SEXUAL DYSFUNCTION [None]
  - DISEASE PROGRESSION [None]
  - FATIGUE [None]
  - DYSGEUSIA [None]
  - AGEUSIA [None]
  - WEIGHT DECREASED [None]
  - GLOSSODYNIA [None]
  - MUSCLE ATROPHY [None]
  - METASTATIC RENAL CELL CARCINOMA [None]
  - DYSPEPSIA [None]
